FAERS Safety Report 11404679 (Version 1)
Quarter: 2015Q3

REPORT INFORMATION
  Report Type: Spontaneous
  Country: PL (occurrence: PL)
  Receive Date: 20150821
  Receipt Date: 20150821
  Transmission Date: 20151125
  Serious: Yes (Hospitalization, Other)
  Sender: FDA-Public Use
  Company Number: PL-GLAXOSMITHKLINE-PL2015017656

PATIENT

DRUGS (3)
  1. VIREAD [Suspect]
     Active Substance: TENOFOVIR DISOPROXIL FUMARATE
     Indication: HEPATITIS B
     Dosage: UNK
     Route: 065
     Dates: start: 201402, end: 201409
  2. LAMIVUDINE. [Suspect]
     Active Substance: LAMIVUDINE
     Indication: HEPATITIS B
     Dosage: UNK
     Dates: start: 201210, end: 201402
  3. ZEFIX [Concomitant]
     Active Substance: LAMIVUDINE
     Indication: HEPATITIS B
     Dosage: 100 MG, UNK
     Route: 048
     Dates: start: 201210, end: 201402

REACTIONS (4)
  - Drug ineffective [Unknown]
  - Nausea [Unknown]
  - Hepatic failure [Unknown]
  - Drug intolerance [Unknown]

NARRATIVE: CASE EVENT DATE: 201403
